FAERS Safety Report 5453704-6 (Version None)
Quarter: 2007Q3

REPORT INFORMATION
  Report Type: 
  Country: None (occurrence: None)
  Receive Date: 20070917
  Receipt Date: 20070907
  Transmission Date: 20080115
  Serious: Yes (Other)
  Sender: FDA-Public Use
  Company Number: US-AVENTIS-200716363US

PATIENT
  Age: 62 Year
  Sex: Female

DRUGS (6)
  1. ALLEGRA [Suspect]
     Route: 048
     Dates: start: 20060101, end: 20070905
  2. THYROID TAB [Concomitant]
     Dosage: DOSE: UNK
  3. CRESTOR [Concomitant]
     Dosage: DOSE: UNK
  4. ENALAPRIL MALEATE [Concomitant]
     Dosage: DOSE: UNK
  5. HYDROCHLOROTHIAZIDE [Concomitant]
     Dosage: DOSE: UNK
  6. PEPCID                             /00706001/ [Concomitant]
     Dosage: DOSE: UNK

REACTIONS (1)
  - HYPERTENSION [None]
